FAERS Safety Report 11766921 (Version 3)
Quarter: 2015Q4

REPORT INFORMATION
  Report Type: Spontaneous
  Country: JP (occurrence: JP)
  Receive Date: 20151123
  Receipt Date: 20151210
  Transmission Date: 20160304
  Serious: Yes (Hospitalization, Other)
  Sender: FDA-Public Use
  Company Number: PHJP2015JP020679

PATIENT
  Age: 75 Year
  Sex: Male

DRUGS (1)
  1. NEORAL [Suspect]
     Active Substance: CYCLOSPORINE
     Indication: PSORIASIS
     Dosage: 50 MG, QD
     Route: 048
     Dates: start: 200610, end: 201010

REACTIONS (2)
  - Hepatocellular carcinoma [Unknown]
  - Hepatic cirrhosis [Unknown]

NARRATIVE: CASE EVENT DATE: 201010
